FAERS Safety Report 12790058 (Version 9)
Quarter: 2018Q3

REPORT INFORMATION
  Report Type: Report from Study
  Country: CA (occurrence: CA)
  Receive Date: 20160928
  Receipt Date: 20180815
  Transmission Date: 20181010
  Serious: Yes (Other)
  Sender: FDA-Public Use
  Company Number: PHHY2016CA081553

PATIENT
  Age: 69 Year
  Sex: Male

DRUGS (1)
  1. SANDOSTATIN LAR DEPOT [Suspect]
     Active Substance: OCTREOTIDE ACETATE
     Indication: NEUROENDOCRINE TUMOUR
     Dosage: 30 MG, QMO (EVERY 4 WEEKS)
     Route: 030
     Dates: start: 20150710

REACTIONS (10)
  - Urinary retention [Unknown]
  - Blood urine present [Unknown]
  - Abdominal pain [Unknown]
  - Wrist fracture [Unknown]
  - Hypertension [Unknown]
  - Urethral obstruction [Unknown]
  - Fall [Unknown]
  - Blood pressure increased [Unknown]
  - Bowel movement irregularity [Unknown]
  - Faeces discoloured [Unknown]

NARRATIVE: CASE EVENT DATE: 2016
